FAERS Safety Report 6259647-2 (Version None)
Quarter: 2009Q3

REPORT INFORMATION
  Report Type: 
  Country: None (occurrence: None)
  Receive Date: 20090706
  Receipt Date: 20090706
  Transmission Date: 20100115
  Serious: Yes (Hospitalization)
  Sender: FDA-Public Use
  Company Number: None

PATIENT
  Age: 51 Year
  Sex: Female

DRUGS (1)
  1. XELODA [Suspect]

REACTIONS (4)
  - DEHYDRATION [None]
  - DIARRHOEA [None]
  - HYPOPHAGIA [None]
  - NAUSEA [None]
